FAERS Safety Report 9158122 (Version 3)
Quarter: 2013Q2

REPORT INFORMATION
  Report Type: Spontaneous
  Country: PL (occurrence: PL)
  Receive Date: 20130312
  Receipt Date: 20130501
  Transmission Date: 20140414
  Serious: Yes (Life-Threatening)
  Sender: FDA-Public Use
  Company Number: PL-GLAXOSMITHKLINE-B0873924A

PATIENT
  Age: 10 Year
  Sex: Female
  Weight: 28.4 kg

DRUGS (2)
  1. ZINACEF [Suspect]
     Indication: PHARYNGITIS
     Dosage: 2G PER DAY
     Route: 042
     Dates: start: 20130301, end: 20130301
  2. ZINNAT [Concomitant]
     Indication: RESPIRATORY TRACT INFECTION
     Route: 048

REACTIONS (4)
  - Loss of consciousness [Recovered/Resolved]
  - Dyspnoea [Recovered/Resolved]
  - Hypopnoea [Recovered/Resolved]
  - Oral discharge [Recovered/Resolved]
